FAERS Safety Report 26170572 (Version 1)
Quarter: 2025Q4

REPORT INFORMATION
  Report Type: Spontaneous
  Country: US (occurrence: US)
  Receive Date: 20251217
  Receipt Date: 20251217
  Transmission Date: 20260118
  Serious: No
  Sender: ALVOGEN
  Company Number: US-ALVOGEN-2025096550

PATIENT
  Sex: Female

DRUGS (3)
  1. FENTANYL [Suspect]
     Active Substance: FENTANYL
     Indication: Pain
     Dosage: PREVIOUS BOX
  2. FENTANYL [Suspect]
     Active Substance: FENTANYL
     Indication: Pain
     Dosage: GTIN: 00347781427474, 75 MCG/HR?EXPIRATION DATE: JUL-2027?THE BOX SHE JUST FINISHED
  3. FENTANYL [Suspect]
     Active Substance: FENTANYL
     Indication: Pain
     Dosage: GTIN: 00347781427474, 75 MCG/HR?EXPIRATION DATE: JUL-2027?CURRENT BOX

REACTIONS (4)
  - Device malfunction [Unknown]
  - Device adhesion issue [Unknown]
  - Product use issue [Unknown]
  - Wrong technique in product usage process [Unknown]
